FAERS Safety Report 20539180 (Version 1)
Quarter: 2022Q1

REPORT INFORMATION
  Report Type: Spontaneous
  Country: NO (occurrence: NO)
  Receive Date: 20220302
  Receipt Date: 20220302
  Transmission Date: 20220423
  Serious: Yes (Hospitalization)
  Sender: FDA-Public Use
  Company Number: None

PATIENT
  Age: 28 Year
  Sex: Male
  Weight: 98 kg

DRUGS (1)
  1. HALDOL [Suspect]
     Active Substance: HALOPERIDOL
     Indication: Hiccups
     Dosage: UNKNOWN
     Route: 048
     Dates: start: 2015, end: 2015

REACTIONS (5)
  - Fatigue [Unknown]
  - Fatigue [Unknown]
  - Restlessness [Unknown]
  - Muscle spasms [Recovered/Resolved]
  - Muscle spasms [Recovered/Resolved]

NARRATIVE: CASE EVENT DATE: 20150101
